FAERS Safety Report 21174203 (Version 1)
Quarter: 2022Q3

REPORT INFORMATION
  Report Type: Report from Study
  Country: US (occurrence: US)
  Receive Date: 20220804
  Receipt Date: 20220804
  Transmission Date: 20221026
  Serious: Yes (Death, Life-Threatening, Hospitalization, Other)
  Sender: FDA-Public Use
  Company Number: US-GILEAD-2022-0589826

PATIENT
  Age: 32 Year
  Sex: Female

DRUGS (5)
  1. AMBRISENTAN [Suspect]
     Active Substance: AMBRISENTAN
     Indication: Pulmonary arterial hypertension
     Dosage: 10 MG, QD
     Route: 065
     Dates: start: 20161019
  2. REMODULIN [Suspect]
     Active Substance: TREPROSTINIL
     Indication: Pulmonary arterial hypertension
     Dosage: 180 NG, Q1MINUTE
     Route: 065
     Dates: start: 20130417
  3. REMODULIN [Suspect]
     Active Substance: TREPROSTINIL
     Dosage: 180 NG, Q1MINUTE
     Route: 065
     Dates: start: 202104
  4. ADEMPAS [Suspect]
     Active Substance: RIOCIGUAT
     Indication: Pulmonary arterial hypertension
     Dosage: 2.5 MG, QD
     Route: 065
     Dates: start: 20200613
  5. ADEMPAS [Suspect]
     Active Substance: RIOCIGUAT
     Dosage: 2.5 MG, TID
     Route: 065
     Dates: start: 202006

REACTIONS (4)
  - Death [Fatal]
  - Back pain [Unknown]
  - Arthralgia [Unknown]
  - Haemoptysis [Unknown]
